FAERS Safety Report 9790679 (Version 1)
Quarter: 2013Q4

REPORT INFORMATION
  Report Type: Spontaneous
  Country: CN (occurrence: CN)
  Receive Date: 20131231
  Receipt Date: 20131231
  Transmission Date: 20140711
  Serious: Yes (Hospitalization)
  Sender: FDA-Public Use
  Company Number: CN-GLAXOSMITHKLINE-B0951316A

PATIENT
  Age: 70 Year
  Sex: Female
  Weight: 55 kg

DRUGS (3)
  1. SEROXAT [Suspect]
     Indication: DEPRESSION
     Route: 048
     Dates: end: 20131127
  2. SEROXAT [Suspect]
     Indication: DEPRESSION
     Route: 048
     Dates: start: 20131128
  3. PROZAC [Suspect]
     Indication: DEPRESSION
     Route: 065
     Dates: start: 20131127, end: 20131127

REACTIONS (6)
  - Pneumonia [Recovering/Resolving]
  - Nausea [Recovered/Resolved]
  - Cough [Recovering/Resolving]
  - Productive cough [Recovering/Resolving]
  - Dyspnoea [Recovering/Resolving]
  - Disease recurrence [Unknown]
